FAERS Safety Report 5106210-2 (Version None)
Quarter: 2006Q3

REPORT INFORMATION
  Report Type: 
  Country: None (occurrence: None)
  Receive Date: 20060912
  Receipt Date: 20060830
  Transmission Date: 20061208
  Serious: Yes (Other)
  Sender: FDA-Public Use
  Company Number: 2006102331

PATIENT
  Age: 10 Year
  Sex: Female

DRUGS (2)
  1. ZARONTIN SYRUP [Suspect]
     Indication: PETIT MAL EPILEPSY
     Dosage: 250 MILLIGRAM EVERY 7 HOURS, (250 MG), ORAL
     Route: 048
  2. DEPAKENE [Concomitant]

REACTIONS (4)
  - CONDITION AGGRAVATED [None]
  - PARALYSIS [None]
  - PETIT MAL EPILEPSY [None]
  - TREATMENT NONCOMPLIANCE [None]
